FAERS Safety Report 15483018 (Version 1)
Quarter: 2018Q4

REPORT INFORMATION
  Report Type: Spontaneous
  Country: US (occurrence: US)
  Receive Date: 20181010
  Receipt Date: 20181010
  Transmission Date: 20190205
  Serious: No
  Sender: FDA-Public Use
  Company Number: US-PFIZER INC-2018404261

PATIENT
  Age: 76 Year
  Sex: Female

DRUGS (1)
  1. BOSULIF [Suspect]
     Active Substance: BOSUTINIB MONOHYDRATE
     Dosage: 400 MG, 1X/DAY
     Dates: start: 20180921, end: 20180930

REACTIONS (4)
  - White blood cell count increased [Unknown]
  - Nausea [Unknown]
  - Diarrhoea [Unknown]
  - Pain [Unknown]
